FAERS Safety Report 10334389 (Version 2)
Quarter: 2014Q3

REPORT INFORMATION
  Report Type: Spontaneous
  Country: RU (occurrence: RU)
  Receive Date: 20140723
  Receipt Date: 20140725
  Transmission Date: 20150326
  Serious: Yes (Other)
  Sender: FDA-Public Use
  Company Number: RU-ROCHE-1436570

PATIENT
  Sex: Female

DRUGS (3)
  1. LAPATINIB [Suspect]
     Active Substance: LAPATINIB
     Indication: PRODUCT USED FOR UNKNOWN INDICATION
     Route: 048
  2. DEXAMETHASONE. [Concomitant]
     Active Substance: DEXAMETHASONE
     Route: 030
  3. XELODA [Suspect]
     Active Substance: CAPECITABINE
     Indication: PRODUCT USED FOR UNKNOWN INDICATION
     Route: 048

REACTIONS (3)
  - Hyperkeratosis [Recovering/Resolving]
  - Rash [Recovering/Resolving]
  - Cushing^s syndrome [Recovering/Resolving]
